FAERS Safety Report 9167495 (Version 2)
Quarter: 2013Q2

REPORT INFORMATION
  Report Type: Spontaneous
  Country: GB (occurrence: GB)
  Receive Date: 20130318
  Receipt Date: 20130429
  Transmission Date: 20140414
  Serious: Yes (Other)
  Sender: FDA-Public Use
  Company Number: GB-ACCORD-016828

PATIENT
  Age: 67 Year
  Sex: Male
  Weight: 99.78 kg

DRUGS (4)
  1. AMLODIPINE [Suspect]
     Indication: BLOOD PRESSURE
     Route: 048
     Dates: start: 20120101
  2. NASONEX [Interacting]
     Indication: PRODUCT USED FOR UNKNOWN INDICATION
     Dosage: DOSAGE FORM: SPRAY
     Dates: end: 201301
  3. RAMIPRIL [Concomitant]
     Dates: end: 20121120
  4. SIMVASTATIN [Interacting]
     Indication: BLOOD CHOLESTEROL INCREASED
     Route: 048
     Dates: end: 20121207

REACTIONS (5)
  - Chest pain [Recovered/Resolved with Sequelae]
  - Myalgia [Recovered/Resolved with Sequelae]
  - Flank pain [Unknown]
  - Cough [Unknown]
  - Drug interaction [Unknown]
